FAERS Safety Report 11506344 (Version 1)
Quarter: 2015Q3

REPORT INFORMATION
  Report Type: Spontaneous
  Country: US (occurrence: US)
  Receive Date: 20150915
  Receipt Date: 20150915
  Transmission Date: 20151125
  Serious: No
  Sender: FDA-Public Use
  Company Number: US-ROCHE-703164

PATIENT
  Age: 55 Year
  Sex: Female
  Weight: 108.9 kg

DRUGS (8)
  1. PEGASYS [Suspect]
     Active Substance: PEGINTERFERON ALFA-2A
     Indication: HEPATITIS C
     Dosage: FORM: PRE-FILLED SYRINGE
     Route: 058
  2. CLONAZEPAM. [Concomitant]
     Active Substance: CLONAZEPAM
     Dosage: AS NEEDED
     Route: 048
  3. VITAMIN D2 [Concomitant]
     Active Substance: ERGOCALCIFEROL
     Dosage: 50000 UNIT; 1 CAPSULE EVERY WEEK FOR 4 WEEKS THEN 1 CAPSULE MONTHLY
     Route: 048
  4. RIBASPHERE RIBAPAK [Suspect]
     Active Substance: RIBAVIRIN
     Indication: HEPATITIS C
     Dosage: DIVIDED DOSES.
     Route: 065
  5. DICLOFENAC SODIUM. [Concomitant]
     Active Substance: DICLOFENAC SODIUM
     Dosage: DELAYED RELEASE TABLET
     Route: 048
  6. RIBASPHERE [Suspect]
     Active Substance: RIBAVIRIN
     Dosage: DOSE REDUCED
     Route: 048
  7. RIBASPHERE [Suspect]
     Active Substance: RIBAVIRIN
     Indication: HEPATITIS C
     Dosage: FORM: TABLETS, DIVIDED DOSES
     Route: 048
  8. NEOMYCIN/POLYMYXIN B/HYDROCORTISONE [Concomitant]
     Dosage: INSTILL 3 DROPS INTO BOTH EARS 3-4 TIMES DAILY FOR 2 WEEKS (REPEAT IF REFLARE OF SYMPTOMS)
     Route: 065

REACTIONS (15)
  - Gastrointestinal pain [Unknown]
  - Pyrexia [Recovered/Resolved]
  - Nervousness [Not Recovered/Not Resolved]
  - Nausea [Unknown]
  - Skin irritation [Unknown]
  - Alopecia [Not Recovered/Not Resolved]
  - Skin mass [Unknown]
  - Dry skin [Not Recovered/Not Resolved]
  - Headache [Recovered/Resolved]
  - Malaise [Not Recovered/Not Resolved]
  - Pruritus [Not Recovered/Not Resolved]
  - Vomiting [Unknown]
  - Rash pruritic [Unknown]
  - Injection site reaction [Unknown]
  - Skin mass [Not Recovered/Not Resolved]

NARRATIVE: CASE EVENT DATE: 20100510
